FAERS Safety Report 12606663 (Version 1)
Quarter: 2016Q3

REPORT INFORMATION
  Report Type: Report from Study
  Country: US (occurrence: US)
  Receive Date: 20160729
  Receipt Date: 20160729
  Transmission Date: 20161109
  Serious: Yes (Hospitalization, Other)
  Sender: FDA-Public Use
  Company Number: US-NAPPMUNDI-USA-2016-0132569

PATIENT
  Sex: Female

DRUGS (1)
  1. BTDS PATCH [Suspect]
     Active Substance: BUPRENORPHINE
     Indication: PAIN
     Dosage: 5 MCG/HR, WEEKLY
     Route: 062

REACTIONS (5)
  - Cerebrovascular accident [Unknown]
  - Extra dose administered [Unknown]
  - Inappropriate schedule of drug administration [Unknown]
  - Pain [Not Recovered/Not Resolved]
  - Unresponsive to stimuli [Unknown]
